FAERS Safety Report 4452256-7 (Version None)
Quarter: 2004Q3

REPORT INFORMATION
  Report Type: 
  Country: None (occurrence: None)
  Receive Date: 20040917
  Receipt Date: 20040909
  Transmission Date: 20050211
  Serious: Yes (Hospitalization)
  Sender: FDA-Public Use
  Company Number: BE-JNJFOC-20040202620

PATIENT
  Sex: Male

DRUGS (17)
  1. BLINDED; INFLIXIMAB, RECOMBINANT [Suspect]
     Route: 042
  2. BLINDED; INFLIXIMAB, RECOMBINANT [Suspect]
     Route: 042
  3. BLINDED; INFLIXIMAB, RECOMBINANT [Suspect]
     Route: 042
  4. BLINDED; INFLIXIMAB, RECOMBINANT [Suspect]
     Route: 042
  5. BLINDED; INFLIXIMAB, RECOMBINANT [Suspect]
     Route: 042
  6. BLINDED; INFLIXIMAB, RECOMBINANT [Suspect]
     Route: 042
  7. BLINDED; INFLIXIMAB, RECOMBINANT [Suspect]
     Route: 042
  8. PLACEBO [Suspect]
     Route: 042
  9. PLACEBO [Suspect]
     Route: 042
  10. PLACEBO [Suspect]
     Route: 042
  11. PLACEBO [Suspect]
     Route: 042
  12. PLACEBO [Suspect]
     Route: 042
  13. PLACEBO [Suspect]
     Route: 042
  14. PLACEBO [Suspect]
     Route: 042
  15. AZATHIOPRINE [Concomitant]
     Route: 049
  16. MESALAMINE [Concomitant]
     Route: 049
  17. AMLODIPINE [Concomitant]
     Indication: HYPERTENSION
     Route: 049

REACTIONS (1)
  - INGUINAL HERNIA, OBSTRUCTIVE [None]
